FAERS Safety Report 23686382 (Version 1)
Quarter: 2024Q1

REPORT INFORMATION
  Report Type: Other
  Country: RO (occurrence: None)
  Receive Date: 20240329
  Receipt Date: 20240329
  Transmission Date: 20240410
  Serious: Yes (Hospitalization)
  Sender: FDA-Public Use
  Company Number: RO-ROCHE-3529432

PATIENT
  Sex: Female
  Weight: 48 kg

DRUGS (1)
  1. ERIVEDGE [Suspect]
     Active Substance: VISMODEGIB
     Indication: Basal cell carcinoma
     Route: 048

REACTIONS (4)
  - Urinary tract obstruction [Unknown]
  - Dysgeusia [Unknown]
  - Anosmia [Unknown]
  - Overdose [Unknown]
